FAERS Safety Report 17100457 (Version 1)
Quarter: 2019Q4

REPORT INFORMATION
  Report Type: Spontaneous
  Country: US (occurrence: US)
  Receive Date: 20191202
  Receipt Date: 20191202
  Transmission Date: 20200122
  Serious: Yes (Other)
  Sender: FDA-Public Use
  Company Number: US-PFIZER INC-2019504672

PATIENT
  Age: 88 Year
  Sex: Female

DRUGS (1)
  1. PREPARATION H RAPID RELIEF [Suspect]
     Active Substance: GLYCERIN\LIDOCAINE
     Dosage: UNK

REACTIONS (4)
  - Cerebrovascular accident [Unknown]
  - Blood pressure increased [Unknown]
  - Limb discomfort [Unknown]
  - Product packaging issue [Unknown]

NARRATIVE: CASE EVENT DATE: 20191119
